FAERS Safety Report 6732244-8 (Version None)
Quarter: 2010Q2

REPORT INFORMATION
  Report Type: 
  Country: None (occurrence: None)
  Receive Date: 20100519
  Receipt Date: 20100514
  Transmission Date: 20101027
  Serious: Yes (Other)
  Sender: FDA-Public Use
  Company Number: A0859776A

PATIENT
  Age: 51 Year
  Sex: Female

DRUGS (2)
  1. TYKERB [Suspect]
     Indication: BREAST CANCER
     Dosage: 1000MG PER DAY
     Route: 048
     Dates: start: 20100226
  2. HERCEPTIN [Concomitant]

REACTIONS (2)
  - INTERSTITIAL LUNG DISEASE [None]
  - LUNG DISORDER [None]
